FAERS Safety Report 9934708 (Version 1)
Quarter: 2014Q1

REPORT INFORMATION
  Report Type: Spontaneous
  Country: US (occurrence: US)
  Receive Date: 20140228
  Receipt Date: 20140228
  Transmission Date: 20141002
  Serious: No
  Sender: FDA-Public Use
  Company Number: US-ASTRAZENECA-2013SE86394

PATIENT
  Age: 36 Year
  Sex: Male

DRUGS (1)
  1. TOPROL-XL [Suspect]
     Indication: HYPERTENSION
     Route: 048

REACTIONS (2)
  - Lymphoedema [Unknown]
  - Impaired work ability [Unknown]
